FAERS Safety Report 5532880-0 (Version None)
Quarter: 2007Q4

REPORT INFORMATION
  Report Type: 
  Country: None (occurrence: None)
  Receive Date: 20071129
  Receipt Date: 20071129
  Transmission Date: 20080405
  Serious: Yes (Other)
  Sender: FDA-Public Use
  Company Number: None

PATIENT
  Sex: Female
  Weight: 54.4316 kg

DRUGS (12)
  1. SYMLIN [Suspect]
     Indication: TYPE 1 DIABETES MELLITUS
     Dosage: 36 MCG TID SQ
     Route: 058
     Dates: start: 20060619, end: 20061127
  2. LANTUS [Concomitant]
  3. NOVOLOG [Concomitant]
  4. ASPIRIN [Concomitant]
  5. FERROUS SULFATE TAB [Concomitant]
  6. PREMPRO [Concomitant]
  7. VITAMIN D [Concomitant]
  8. CALCIUM [Concomitant]
  9. SYNTHROID [Concomitant]
  10. VASOTEC [Concomitant]
  11. HYDROCHLOROTHIAZIDE [Concomitant]
  12. ALLEGRA [Concomitant]

REACTIONS (5)
  - COLITIS COLLAGENOUS [None]
  - GASTRITIS [None]
  - GASTROINTESTINAL DISORDER [None]
  - OVERGROWTH BACTERIAL [None]
  - WEIGHT DECREASED [None]
